FAERS Safety Report 21027013 (Version 1)
Quarter: 2022Q2

REPORT INFORMATION
  Report Type: Spontaneous
  Country: US (occurrence: US)
  Receive Date: 20220630
  Receipt Date: 20220630
  Transmission Date: 20220721
  Serious: Yes (Hospitalization)
  Sender: FDA-Public Use
  Company Number: US-BEH-2022146865

PATIENT
  Sex: Male

DRUGS (1)
  1. HIZENTRA [Suspect]
     Active Substance: HUMAN IMMUNOGLOBULIN G
     Indication: Arthropathy
     Dosage: 15 GRAM, QW
     Route: 058
     Dates: start: 20210322

REACTIONS (3)
  - Renal disorder [Unknown]
  - No adverse event [Unknown]
  - Off label use [Unknown]
